FAERS Safety Report 17806364 (Version 2)
Quarter: 2020Q2

REPORT INFORMATION
  Report Type: Spontaneous
  Country: US (occurrence: US)
  Receive Date: 20200520
  Receipt Date: 20200528
  Transmission Date: 20200714
  Serious: Yes (Other)
  Sender: FDA-Public Use
  Company Number: US-DRREDDYS-USA/USA/20/0123152

PATIENT
  Sex: Female

DRUGS (1)
  1. OXYTOCIN. [Suspect]
     Active Substance: OXYTOCIN
     Indication: PRE-ECLAMPSIA
     Route: 065

REACTIONS (3)
  - Hyponatraemia [Unknown]
  - HELLP syndrome [Unknown]
  - Urine output decreased [Unknown]
